FAERS Safety Report 23089766 (Version 1)
Quarter: 2023Q4

REPORT INFORMATION
  Report Type: Spontaneous
  Country: US (occurrence: None)
  Receive Date: 20231019
  Receipt Date: 20231019
  Transmission Date: 20240110
  Serious: Yes (Hospitalization)
  Sender: FDA-Public Use
  Company Number: None

PATIENT
  Age: 74 Year
  Sex: Male
  Weight: 55 kg

DRUGS (1)
  1. LISINOPRIL [Suspect]
     Active Substance: LISINOPRIL
     Dosage: OTHER QUANTITY : 04-80 MG;?FREQUENCY : DAILY;?
     Route: 048
     Dates: start: 20150101, end: 20230203

REACTIONS (2)
  - Angioedema [None]
  - Haemoptysis [None]

NARRATIVE: CASE EVENT DATE: 20230201
